FAERS Safety Report 4901843-8 (Version None)
Quarter: 2006Q1

REPORT INFORMATION
  Report Type: 
  Country: None (occurrence: None)
  Receive Date: 20060202
  Receipt Date: 20060202
  Transmission Date: 20060701
  Serious: No
  Sender: FDA-Public Use
  Company Number: None

PATIENT
  Age: 40 Year
  Sex: Male

DRUGS (4)
  1. OXYCONTIN [Suspect]
     Indication: PAIN
     Dosage: 400 MG BID PO
     Route: 048
  2. OXYCONTIN [Suspect]
     Indication: PARAESTHESIA
     Dosage: 400 MG BID PO
     Route: 048
  3. OXYCONTIN [Suspect]
     Indication: SPINAL CORD INJURY
     Dosage: 400 MG BID PO
     Route: 048
  4. METHADONE [Suspect]
     Dosage: 10 MG BID PO
     Route: 048

REACTIONS (2)
  - ANXIETY [None]
  - PRURITUS [None]
